FAERS Safety Report 19319374 (Version 5)
Quarter: 2021Q3

REPORT INFORMATION
  Report Type: Report from Study
  Country: US (occurrence: US)
  Receive Date: 20210527
  Receipt Date: 20210818
  Transmission Date: 20211014
  Serious: No
  Sender: FDA-Public Use
  Company Number: NVSC2021US119955

PATIENT
  Sex: Male

DRUGS (3)
  1. ENTRESTO [Suspect]
     Active Substance: SACUBITRIL\VALSARTAN
     Indication: CARDIAC FAILURE
     Dosage: 100 MG, BID(49/51)
     Route: 048
  2. JARDIANCE [Concomitant]
     Active Substance: EMPAGLIFLOZIN
     Indication: DIABETES MELLITUS
     Dosage: UNK
     Route: 065
  3. ENTRESTO [Suspect]
     Active Substance: SACUBITRIL\VALSARTAN
     Dosage: 50 MG, BID(24/26)MG
     Route: 048
     Dates: start: 202104

REACTIONS (7)
  - Pain [Unknown]
  - Musculoskeletal chest pain [Not Recovered/Not Resolved]
  - Wrong technique in product usage process [Unknown]
  - Sinus pain [Unknown]
  - Sinusitis [Unknown]
  - Cough [Recovered/Resolved]
  - Product dose omission issue [Unknown]
